FAERS Safety Report 25892038 (Version 1)
Quarter: 2025Q4

REPORT INFORMATION
  Report Type: Spontaneous
  Country: US (occurrence: US)
  Receive Date: 20251007
  Receipt Date: 20251007
  Transmission Date: 20260118
  Serious: Yes (Other)
  Sender: BAYER HEALTHCARE PHARMACEUTICALS INC.
  Company Number: US-BAYER-2025A128180

PATIENT
  Sex: Male

DRUGS (3)
  1. NUBEQA [Suspect]
     Active Substance: DAROLUTAMIDE
     Indication: Prostate cancer
     Dosage: UNK
  2. ELIGARD [Suspect]
     Active Substance: LEUPROLIDE ACETATE
     Dosage: 22.5 MG, Q3MON
     Dates: start: 2017
  3. ELIGARD [Suspect]
     Active Substance: LEUPROLIDE ACETATE
     Dosage: UNK
     Dates: start: 202501

REACTIONS (6)
  - Rectal haemorrhage [Not Recovered/Not Resolved]
  - Dementia [None]
  - Dementia [None]
  - Gastric mucosal lesion [None]
  - Abdominal pain upper [None]
  - Injection site pain [None]

NARRATIVE: CASE EVENT DATE: 20250101
